FAERS Safety Report 7178966-9 (Version None)
Quarter: 2010Q4

REPORT INFORMATION
  Report Type: 
  Country: None (occurrence: None)
  Receive Date: 20101221
  Receipt Date: 20101207
  Transmission Date: 20110411
  Serious: Yes (Hospitalization, Other)
  Sender: FDA-Public Use
  Company Number: US-SOLVAY-00210007287

PATIENT
  Sex: Female
  Weight: 1.66 kg

DRUGS (5)
  1. INDOCIN [Concomitant]
     Indication: DRUG EXPOSURE DURING PREGNANCY
     Dosage: DAILY DOSE:  UNKNOWN
     Route: 064
  2. PROCARDIA [Concomitant]
     Indication: DRUG EXPOSURE DURING PREGNANCY
     Dosage: DAILY DOSE:  UNKNOWN
     Route: 064
  3. PEPCID [Concomitant]
     Indication: DRUG EXPOSURE DURING PREGNANCY
     Dosage: DAILY DOSE:  UNKNOWN
     Route: 064
  4. ANDROGEL [Suspect]
     Indication: ACCIDENTAL EXPOSURE
     Dosage: DAILY DOSE:  UNKNOWN, THREE TIMES A DAY FOR SEVERAL YEARS
     Route: 064
  5. WELLBUTRIN [Concomitant]
     Indication: DRUG EXPOSURE DURING PREGNANCY
     Dosage: DAILY DOSE:  UNKNOWN
     Route: 064

REACTIONS (4)
  - BLOOD TESTOSTERONE INCREASED [None]
  - ENLARGED CLITORIS [None]
  - PRECOCIOUS PUBERTY [None]
  - PREMATURE BABY [None]
